FAERS Safety Report 7433989-7 (Version None)
Quarter: 2011Q2

REPORT INFORMATION
  Report Type: 
  Country: None (occurrence: None)
  Receive Date: 20110421
  Receipt Date: 20110421
  Transmission Date: 20111010
  Serious: Yes (Life-Threatening, Hospitalization)
  Sender: FDA-Public Use
  Company Number: None

PATIENT
  Age: 66 Year
  Sex: Female
  Weight: 86.1834 kg

DRUGS (1)
  1. ONGLYZA [Suspect]
     Indication: DIABETES MELLITUS
     Dosage: 5MG 1 X DAY BY MOUTH JAN 31 - FEB 28
     Route: 048

REACTIONS (5)
  - HEART RATE INCREASED [None]
  - CARDIAC FLUTTER [None]
  - CHEST PAIN [None]
  - RENAL FAILURE [None]
  - HYPERTENSION [None]
